FAERS Safety Report 9847424 (Version 2)
Quarter: 2014Q1

REPORT INFORMATION
  Report Type: Spontaneous
  Country: US (occurrence: US)
  Receive Date: 20140127
  Receipt Date: 20140127
  Transmission Date: 20141002
  Serious: Yes (Hospitalization, Other)
  Sender: FDA-Public Use
  Company Number: PHHY2011US00507

PATIENT
  Age: 60 Year
  Sex: Female

DRUGS (27)
  1. RECLAST [Suspect]
     Dosage: 5 MG, UNK
     Route: 042
  2. RECLAST [Suspect]
     Dosage: 5 MG, UNK
     Route: 042
  3. RECLAST [Suspect]
     Dosage: 5 MG, UNK
     Route: 042
     Dates: start: 20131227
  4. NEURONTIN [Concomitant]
     Dosage: UNK UKN, UNK
  5. PROPYLTHIOURACIL [Concomitant]
     Dosage: UNK UKN, UNK
  6. VANMED [Concomitant]
     Dosage: UNK UKN, UNK
  7. CREON [Concomitant]
     Dosage: UNK UKN, UNK
  8. ALLEGRA-D [Concomitant]
     Dosage: UNK UKN, UNK
  9. VITAMIN D3 [Concomitant]
     Dosage: UNK UKN, UNK
  10. VITAMIN B COMPLEX [Concomitant]
     Dosage: UNK UKN, UNK
  11. OLIVE LEAVES EXTRACT [Concomitant]
     Dosage: UNK UKN, UNK
  12. TYLENOL [Concomitant]
     Dosage: UNK UKN, UNK
  13. CRESTOR [Concomitant]
     Dosage: UNK UKN, UNK
  14. NASONEX [Concomitant]
     Dosage: UNK UKN, UNK
  15. SOOTHE XP [Concomitant]
     Dosage: UNK UKN, UNK
  16. NYSTATIN [Concomitant]
     Dosage: UNK UKN, UNK
  17. TRIAMCINOLONE [Concomitant]
     Dosage: UNK UKN, UNK
  18. CITRACAL + D [Concomitant]
     Dosage: UNK UKN, UNK
  19. MELATONIN [Concomitant]
     Dosage: UNK UKN, UNK
  20. LOVAZA [Concomitant]
     Dosage: UNK UKN, UNK
  21. LIDODERM [Concomitant]
     Dosage: UNK UKN, UNK
  22. ALPHA LIPOIC ACID [Concomitant]
     Dosage: UNK UKN, UNK
  23. BIOFREEZE [Concomitant]
     Dosage: UNK UKN, UNK
  24. PROBIOTICS [Concomitant]
     Dosage: UNK UKN, UNK
  25. VAGIFEM [Concomitant]
     Dosage: UNK UKN, UNK
  26. XOLAIR [Concomitant]
     Dosage: UNK UKN, UNK
  27. CALCIUM CITRATE [Concomitant]
     Dosage: UNK UKN, UNK

REACTIONS (13)
  - Gout [Unknown]
  - Pain [Not Recovered/Not Resolved]
  - Joint swelling [Unknown]
  - Thrombosis [Unknown]
  - Pyrexia [Unknown]
  - Loss of consciousness [Unknown]
  - Local swelling [Unknown]
  - Influenza like illness [Unknown]
  - Arthralgia [Unknown]
  - Myalgia [Unknown]
  - Chills [Unknown]
  - Diarrhoea [Unknown]
  - Vomiting [Unknown]
